FAERS Safety Report 23793765 (Version 1)
Quarter: 2024Q2

REPORT INFORMATION
  Report Type: Spontaneous
  Country: JP (occurrence: JP)
  Receive Date: 20240429
  Receipt Date: 20240429
  Transmission Date: 20240715
  Serious: Yes (Hospitalization, Other)
  Sender: FDA-Public Use
  Company Number: JP-PFIZER INC-PV202300142271

PATIENT
  Age: 46 Year
  Sex: Female
  Weight: 41.7 kg

DRUGS (15)
  1. PAXLOVID [Interacting]
     Active Substance: NIRMATRELVIR\RITONAVIR
     Indication: COVID-19 treatment
     Dosage: UNK, 2X/DAY
     Route: 048
     Dates: start: 20230814, end: 20230817
  2. TACROLIMUS [Interacting]
     Active Substance: TACROLIMUS
     Dosage: 5 CP IN 1 DOSE AFTER BREAKFAST
     Route: 048
  3. TACROLIMUS [Interacting]
     Active Substance: TACROLIMUS
     Dosage: 1 CP IN 1 DOSE AFTER BREAKFAST
     Route: 048
  4. MEDROL [Concomitant]
     Active Substance: METHYLPREDNISOLONE
     Dosage: 1T TAKING ORALLY AT 09:00
     Route: 048
  5. MIZORIBINE [Concomitant]
     Active Substance: MIZORIBINE
     Dosage: 2 TABLETS IN 1 DOSE AFTER BREAKFAST
     Route: 048
  6. CELLCEPT [Concomitant]
     Active Substance: MYCOPHENOLATE MOFETIL
     Dosage: 250 MG 2 CP DIVIDED INTO 2 DOSES, MORNING AND EVENING
     Route: 048
  7. CINACALCET HYDROCHLORIDE [Concomitant]
     Active Substance: CINACALCET HYDROCHLORIDE
     Dosage: 1 TABLET IN 1 DOSE AFTER BREAKFAST
     Route: 048
  8. BIOFERMIN [BIFIDOBACTERIUM NOS] [Concomitant]
     Dosage: 3 TABLETS DIVIDED INTO 3 DOSES, AFTER EACH MEAL
     Route: 048
  9. FEBUXOSTAT [Concomitant]
     Active Substance: FEBUXOSTAT
     Dosage: 20MG 1 TABLET IN 1 DOSE AFTER DINNER
     Route: 048
  10. NIFEDIPINE [Concomitant]
     Active Substance: NIFEDIPINE
     Dosage: 40MG 1 TABLET IN 1 DOSE AFTER DINNER
     Route: 048
  11. ASPIRIN [Concomitant]
     Active Substance: ASPIRIN
     Dosage: 100MG 1 TABLET IN 1 DOSE AFTER BREAKFAST
     Route: 048
  12. LIMAPROST [Concomitant]
     Active Substance: LIMAPROST
     Dosage: 5UG 6 TABLETS DIVIDED INTO 3 DOSES, AFTER EACH MEAL
     Route: 048
  13. LANSOPRAZOLE [Concomitant]
     Active Substance: LANSOPRAZOLE
     Dosage: 15MG 1 TABLET ONCE DAILY AFTER DINNER
     Route: 048
  14. ALFACALCIDOL [Concomitant]
     Active Substance: ALFACALCIDOL
     Dosage: 0.5UG 1 CP ONCE DAILY AFTER DINNER
     Route: 048
  15. ACYCLOVIR [Concomitant]
     Active Substance: ACYCLOVIR
     Dosage: 1 TABLET ONCE DAILY AFTER DINNER
     Route: 048

REACTIONS (7)
  - Drug level increased [Recovered/Resolved]
  - Drug interaction [Recovered/Resolved]
  - White blood cell count decreased [Recovered/Resolved]
  - Alanine aminotransferase increased [Unknown]
  - Blood triglycerides increased [Unknown]
  - Off label use [Unknown]
  - Product use issue [Unknown]

NARRATIVE: CASE EVENT DATE: 20230814
